FAERS Safety Report 9642987 (Version 1)
Quarter: 2013Q4

REPORT INFORMATION
  Report Type: Spontaneous
  Country: US (occurrence: US)
  Receive Date: 20131024
  Receipt Date: 20131024
  Transmission Date: 20140711
  Serious: No
  Sender: FDA-Public Use
  Company Number: US-MYLANLABS-2013S1013175

PATIENT
  Age: 25 Year
  Sex: Female

DRUGS (1)
  1. DIAZEPAM [Suspect]
     Indication: ANXIETY
     Route: 048

REACTIONS (2)
  - False positive investigation result [Not Recovered/Not Resolved]
  - False negative investigation result [Not Recovered/Not Resolved]
